FAERS Safety Report 9161941 (Version 1)
Quarter: 2013Q1

REPORT INFORMATION
  Report Type: Spontaneous
  Country: IN (occurrence: None)
  Receive Date: 20130225
  Receipt Date: 20130225
  Transmission Date: 20140127
  Serious: Yes (Hospitalization)
  Sender: FDA-Public Use
  Company Number: 145576

PATIENT
  Age: 24 Year
  Sex: Male

DRUGS (1)
  1. ONDANSETRON [Suspect]
     Indication: GASTROENTERITIS

REACTIONS (2)
  - Toxic epidermal necrolysis [None]
  - Nausea [None]
